FAERS Safety Report 6599885-2 (Version None)
Quarter: 2010Q1

REPORT INFORMATION
  Report Type: 
  Country: None (occurrence: None)
  Receive Date: 20100217
  Receipt Date: 20100208
  Transmission Date: 20100710
  Serious: Yes (Hospitalization)
  Sender: FDA-Public Use
  Company Number: 2010000375

PATIENT
  Age: 64 Year
  Sex: Female
  Weight: 70.3075 kg

DRUGS (14)
  1. ACTIQ [Suspect]
     Indication: BACK PAIN
     Dosage: 6400 MCG (1600 MCG, 4 IN 1 D), BUCCAL
     Route: 002
     Dates: start: 20020101
  2. METHADONE (METHADONE) (10 MILLIGRAM) [Concomitant]
  3. OXYCODONE HCL [Concomitant]
  4. NEURONTIN [Concomitant]
  5. VALIUM [Concomitant]
  6. SOMA [Concomitant]
  7. DILAUDID [Concomitant]
  8. MORPHINE SULFATE (HYDROMORPHONE HYDROCHLORIDE) [Concomitant]
  9. LYRICA [Concomitant]
  10. WELLBUTRIN [Concomitant]
  11. ABILIFY [Concomitant]
  12. PAXIL [Concomitant]
  13. REMERON [Concomitant]
  14. MS CONTIN [Concomitant]

REACTIONS (4)
  - DRUG DEPENDENCE [None]
  - DRUG EFFECT DECREASED [None]
  - TOOTH DISCOLOURATION [None]
  - TOOTH LOSS [None]
